FAERS Safety Report 17281552 (Version 1)
Quarter: 2020Q1

REPORT INFORMATION
  Report Type: Spontaneous
  Country: US (occurrence: US)
  Receive Date: 20191227
  Receipt Date: 20191227
  Transmission Date: 20200409
  Serious: Yes (Hospitalization)
  Sender: FDA-Public Use
  Company Number: None

PATIENT
  Age: 80 Year
  Sex: Female

DRUGS (8)
  1. OPDIVO [Suspect]
     Active Substance: NIVOLUMAB
     Indication: NEOPLASM MALIGNANT
     Dosage: ?          OTHER ROUTE:IV?
     Route: 042
     Dates: start: 20190516, end: 20191225
  2. TRAMADOL. [Concomitant]
     Active Substance: TRAMADOL
  3. ONE TOUCH [Concomitant]
     Active Substance: DEXTROSE
  4. AMLODIPINE [Concomitant]
     Active Substance: AMLODIPINE BESYLATE
  5. POT CHLORIDE TAB [Concomitant]
  6. HYDRALAZINE [Concomitant]
     Active Substance: HYDRALAZINE HYDROCHLORIDE
  7. HYDROXY Z HCL TAB [Concomitant]
  8. METFORMIN [Concomitant]
     Active Substance: METFORMIN HYDROCHLORIDE

REACTIONS (2)
  - Gait inability [None]
  - Tremor [None]

NARRATIVE: CASE EVENT DATE: 20191224
